FAERS Safety Report 14598722 (Version 1)
Quarter: 2018Q1

REPORT INFORMATION
  Report Type: Spontaneous
  Country: US (occurrence: US)
  Receive Date: 20180302
  Receipt Date: 20180302
  Transmission Date: 20180509
  Serious: Yes (Hospitalization)
  Sender: FDA-Public Use
  Company Number: None

PATIENT
  Age: 60 Year
  Sex: Female
  Weight: 81 kg

DRUGS (2)
  1. HIGH BLOOD PRESSURE PILLS [Concomitant]
  2. CAPZASIN HP ARTHRITIS PAIN RELIEF [Suspect]
     Active Substance: CAPSAICIN
     Indication: LIGAMENT SPRAIN
     Dosage: ?          OTHER STRENGTH:.1%;QUANTITY:1 NONE;?
     Route: 061

REACTIONS (1)
  - Application site burn [None]

NARRATIVE: CASE EVENT DATE: 20180226
